FAERS Safety Report 4612884-2 (Version None)
Quarter: 2005Q1

REPORT INFORMATION
  Report Type: 
  Country: None (occurrence: None)
  Receive Date: 20050318
  Receipt Date: 20050310
  Transmission Date: 20050727
  Serious: Yes (Other)
  Sender: FDA-Public Use
  Company Number: PHFR2005GB01185

PATIENT
  Sex: Male

DRUGS (2)
  1. TEGRETOL [Suspect]
     Indication: TEMPORAL LOBE EPILEPSY
     Dosage: 200 MG, BID
  2. TEGRETOL [Suspect]
     Indication: TEMPORAL LOBE EPILEPSY

REACTIONS (2)
  - AGGRESSION [None]
  - CHRONIC LYMPHOCYTIC LEUKAEMIA [None]
